FAERS Safety Report 20731060 (Version 1)
Quarter: 2022Q2

REPORT INFORMATION
  Report Type: Report from Study
  Country: US (occurrence: None)
  Receive Date: 20220420
  Receipt Date: 20220420
  Transmission Date: 20220721
  Serious: Yes (Hospitalization)
  Sender: FDA-Public Use
  Company Number: US-Eisai Medical Research-EC-2022-112299

PATIENT
  Age: 64 Year
  Sex: Male

DRUGS (2)
  1. LENVIMA [Suspect]
     Active Substance: LENVATINIB
     Indication: Renal cancer
     Route: 048
     Dates: start: 20220326, end: 20220405
  2. EVEROLIMUS [Concomitant]
     Active Substance: EVEROLIMUS

REACTIONS (5)
  - Diarrhoea [Recovering/Resolving]
  - Headache [Recovering/Resolving]
  - Myalgia [Recovering/Resolving]
  - Nausea [Recovering/Resolving]
  - Prescribed underdose [Recovering/Resolving]

NARRATIVE: CASE EVENT DATE: 20220101
